FAERS Safety Report 5601565-4 (Version None)
Quarter: 2008Q1

REPORT INFORMATION
  Report Type: 
  Country: None (occurrence: None)
  Receive Date: 20080124
  Receipt Date: 20080124
  Transmission Date: 20080703
  Serious: Yes (Other)
  Sender: FDA-Public Use
  Company Number: US-JNJFOC-20060602967

PATIENT
  Age: 75 Year
  Sex: Female

DRUGS (2)
  1. ARESTIN [Suspect]
     Indication: PERIODONTITIS
  2. MACROBID [Concomitant]
     Indication: CYSTITIS

REACTIONS (2)
  - CYSTITIS [None]
  - SYSTEMIC LUPUS ERYTHEMATOSUS RASH [None]
